FAERS Safety Report 4557035-8 (Version None)
Quarter: 2005Q1

REPORT INFORMATION
  Report Type: 
  Country: None (occurrence: None)
  Receive Date: 20050118
  Receipt Date: 20041231
  Transmission Date: 20050727
  Serious: Yes (Life-Threatening, Hospitalization)
  Sender: FDA-Public Use
  Company Number: 04-0010-PO FOLLOW UP 2

PATIENT
  Age: 61 Year
  Sex: Female
  Weight: 60 kg

DRUGS (10)
  1. PONSTEL [Suspect]
     Dosage: 18G, ONCE, PO
     Route: 048
  2. LITHIUM CARBONATE [Suspect]
     Dosage: 4000MG, ONCE, PO
     Route: 048
  3. FLUVOXAMINE MALEATE [Suspect]
     Dosage: 800MG ONCE PO
     Route: 048
  4. CLORAZEPATE DIPOTASSIUM [Suspect]
     Dosage: 250MG ONCE PO
     Route: 048
  5. CLOTIAPINE (ENTUMINE) [Suspect]
     Dosage: 4000MG ONCE PO
     Route: 048
  6. FLURAZEPAM HCL [Suspect]
     Dosage: 1800MG ONCE PO
     Route: 048
  7. TRAMADOL HCL [Suspect]
     Dosage: 450MG ONCE PO
     Route: 048
  8. INDERAL [Suspect]
     Dosage: 300MG ONCE PO
     Route: 048
  9. LUVOX [Concomitant]
  10. TOLTERADINE [Concomitant]

REACTIONS (14)
  - ANAEMIA [None]
  - COMA [None]
  - GASTRIC ULCER [None]
  - GASTRITIS HAEMORRHAGIC [None]
  - HAEMATEMESIS [None]
  - HAEMODIALYSIS [None]
  - MYOCLONUS [None]
  - OEDEMA PERIPHERAL [None]
  - OVERDOSE [None]
  - PACKED RED BLOOD CELL TRANSFUSION [None]
  - RENAL FAILURE ACUTE [None]
  - SEROTONIN SYNDROME [None]
  - SUICIDE ATTEMPT [None]
  - THROMBOCYTOPENIA [None]
